FAERS Safety Report 6138638-6 (Version None)
Quarter: 2009Q1

REPORT INFORMATION
  Report Type: 
  Country: None (occurrence: None)
  Receive Date: 20090331
  Receipt Date: 20090318
  Transmission Date: 20090719
  Serious: Yes (Other)
  Sender: FDA-Public Use
  Company Number: US-ELI_LILLY_AND_COMPANY-US200903004575

PATIENT
  Sex: Male

DRUGS (2)
  1. ZYPREXA [Suspect]
     Dosage: 20 MG, UNK
     Dates: start: 19990101
  2. ZYPREXA [Suspect]
     Dosage: 30 MG, UNK

REACTIONS (8)
  - BARIUM SWALLOW [None]
  - BLOOD CHOLESTEROL INCREASED [None]
  - BURNING SENSATION [None]
  - CARDIAC DISORDER [None]
  - HYPERHIDROSIS [None]
  - OVERDOSE [None]
  - PALPITATIONS [None]
  - WEIGHT INCREASED [None]
